FAERS Safety Report 19828132 (Version 9)
Quarter: 2022Q4

REPORT INFORMATION
  Report Type: Spontaneous
  Country: JP (occurrence: JP)
  Receive Date: 20210914
  Receipt Date: 20221028
  Transmission Date: 20230112
  Serious: Yes (Other)
  Sender: FDA-Public Use
  Company Number: JP-ASTELLAS-2021JP017598

PATIENT
  Age: 54 Year
  Sex: Male

DRUGS (11)
  1. XOSPATA [Suspect]
     Active Substance: GILTERITINIB
     Indication: Acute leukaemia
     Dosage: 120 MG/DAY, UNKNOWN FREQ.
     Route: 065
  2. XOSPATA [Suspect]
     Active Substance: GILTERITINIB
     Dosage: 80 MG/DAY, UNKNOWN FREQ.
     Route: 065
  3. XOSPATA [Suspect]
     Active Substance: GILTERITINIB
     Dosage: 40 MG/DAY, UNKNOWN FREQ.
     Route: 048
     Dates: start: 20200117, end: 20200316
  4. XOSPATA [Suspect]
     Active Substance: GILTERITINIB
     Dosage: 80 MG/DAY, UNKNOWN FREQ.
     Route: 048
     Dates: start: 20200317, end: 20200716
  5. XOSPATA [Suspect]
     Active Substance: GILTERITINIB
     Dosage: 40 MG/DAY, UNKNOWN FREQ.
     Route: 048
     Dates: start: 20200901
  6. PROGRAF [Concomitant]
     Active Substance: TACROLIMUS
     Indication: Stem cell transplant
     Dosage: 1.5 MG/DAY, UNKNOWN FREQ.
     Route: 065
  7. PROGRAF [Concomitant]
     Active Substance: TACROLIMUS
     Dosage: 1.5 MG/DAY, 1 MG/DAY ALTERNATELY, UNKNOWN FREQ.
     Route: 065
  8. PROGRAF [Concomitant]
     Active Substance: TACROLIMUS
     Dosage: 1 MG/DAY, UNKNOWN FREQ.
     Route: 065
  9. PROGRAF [Concomitant]
     Active Substance: TACROLIMUS
     Dosage: 1 MG/DAY, 0.5 MG/DAY ALTERNATELY, UNKNOWN FREQ.
     Route: 065
  10. PROGRAF [Concomitant]
     Active Substance: TACROLIMUS
     Dosage: 0.5 MG/DAY, UNKNOWN FREQ.
     Route: 065
  11. POSACONAZOLE [Concomitant]
     Active Substance: POSACONAZOLE
     Indication: Product used for unknown indication
     Dosage: UNK UNK, UNKNOWN FREQ.
     Route: 065

REACTIONS (2)
  - Anaemia [Recovering/Resolving]
  - Blood creatine phosphokinase increased [Recovering/Resolving]
